FAERS Safety Report 7889564-3 (Version None)
Quarter: 2011Q4

REPORT INFORMATION
  Report Type: 
  Country: None (occurrence: None)
  Receive Date: 20111103
  Receipt Date: 20110315
  Transmission Date: 20120403
  Serious: No
  Sender: FDA-Public Use
  Company Number: US-BRISTOL-MYERS SQUIBB COMPANY-15608524

PATIENT
  Age: 72 Year
  Sex: Male
  Weight: 79 kg

DRUGS (13)
  1. LEVOTHYROXINE SODIUM [Concomitant]
  2. LANTUS [Concomitant]
     Dosage: 1 DF = 36 UNITS
  3. KENALOG-40 [Suspect]
  4. CRESTOR [Concomitant]
  5. JANUVIA [Concomitant]
  6. LEUCOVORIN CALCIUM [Concomitant]
  7. ORENCIA [Suspect]
     Dosage: 700 UNITS NOS
     Dates: start: 20110127
  8. PREDNISONE [Concomitant]
  9. FUROSEMIDE [Concomitant]
  10. LISINOPRIL [Concomitant]
  11. NOVOLOG [Concomitant]
     Dosage: 1 DF = 8 UNITS(BEFORE MEALS)
  12. METHOTREXATE [Concomitant]
     Dosage: 9 PILLS
  13. KLOR-CON [Concomitant]

REACTIONS (3)
  - DYSPNOEA [None]
  - ARTHRALGIA [None]
  - MUSCULAR WEAKNESS [None]
